FAERS Safety Report 21710989 (Version 1)
Quarter: 2022Q4

REPORT INFORMATION
  Report Type: Spontaneous
  Country: ES (occurrence: ES)
  Receive Date: 20221212
  Receipt Date: 20221212
  Transmission Date: 20230112
  Serious: Yes (Other)
  Sender: FDA-Public Use
  Company Number: ES-CHEPLA-2022011096

PATIENT
  Age: 23 Year
  Sex: Male

DRUGS (18)
  1. BRIVIACT [Suspect]
     Active Substance: BRIVARACETAM
     Indication: New onset refractory status epilepticus
     Dosage: 400 MILLIGRAM
  2. BRIVIACT [Suspect]
     Active Substance: BRIVARACETAM
     Dosage: 400 MILLIGRAM
  3. VIMPAT [Suspect]
     Active Substance: LACOSAMIDE
     Indication: New onset refractory status epilepticus
     Dosage: 500 MILLIGRAM
  4. ANAKINRA [Suspect]
     Active Substance: ANAKINRA
     Indication: New onset refractory status epilepticus
     Dosage: 5 MILLIGRAM/KILOGRAM (AT DAY 28)
  5. CLONAZEPAM [Suspect]
     Active Substance: CLONAZEPAM
     Indication: New onset refractory status epilepticus
     Dosage: 3 MILLIGRAM
  6. PERAMPANEL [Suspect]
     Active Substance: PERAMPANEL
     Indication: New onset refractory status epilepticus
     Dosage: 12 MILLIGRAM
  7. PERAMPANEL [Suspect]
     Active Substance: PERAMPANEL
     Dosage: 20 MILLIGRAM
  8. PERAMPANEL [Suspect]
     Active Substance: PERAMPANEL
     Dosage: 12 MILLIGRAM
  9. PHENYTOIN [Suspect]
     Active Substance: PHENYTOIN
     Indication: New onset refractory status epilepticus
     Dosage: 800 MILLIGRAM
  10. VALPROIC ACID [Suspect]
     Active Substance: VALPROIC ACID
     Indication: New onset refractory status epilepticus
     Dosage: 1500 MILLIGRAM
  11. VALPROIC ACID [Suspect]
     Active Substance: VALPROIC ACID
     Dosage: 3400 MILLIGRAM
  12. ZONISAMIDE [Suspect]
     Active Substance: ZONISAMIDE
     Indication: New onset refractory status epilepticus
     Dosage: 200 MILLIGRAM
  13. ZONISAMIDE [Suspect]
     Active Substance: ZONISAMIDE
     Dosage: 500 MILLIGRAM
  14. CANNABIDIOL [Concomitant]
     Active Substance: CANNABIDIOL
     Indication: Product used for unknown indication
     Dosage: 10 MILLIGRAM
  15. Immunoglobulin [Concomitant]
     Indication: Product used for unknown indication
     Dosage: 0.4 GRAM PER KILOGRAM
  16. METHYLPREDNISOLONE [Concomitant]
     Active Substance: METHYLPREDNISOLONE
     Indication: Product used for unknown indication
     Dosage: 1 GRAM (ADMINISTERED AT DAYS 14, 17, 20 AND 23, RESPECTIVELY)
  17. PHENOBARBITAL [Concomitant]
     Active Substance: PHENOBARBITAL
     Indication: Sedation
     Dosage: 800 MILLIGRAM
  18. TOCILIZUMAB [Concomitant]
     Active Substance: TOCILIZUMAB
     Indication: Product used for unknown indication
     Dosage: 8 MILLIGRAM/KILOGRAM (ADMINISTERED AT DAYS 14, 17, 20 AND 23, RESPECTIVELY)

REACTIONS (2)
  - Epilepsy [Unknown]
  - Drug ineffective [Unknown]
